FAERS Safety Report 11888822 (Version 1)
Quarter: 2016Q1

REPORT INFORMATION
  Report Type: Report from Study
  Country: US (occurrence: US)
  Receive Date: 20160105
  Receipt Date: 20160105
  Transmission Date: 20160526
  Serious: Yes (Other)
  Sender: FDA-Public Use
  Company Number: US-ABBVIE-09P-163-0596152-00

PATIENT
  Age: 43 Year
  Sex: Female

DRUGS (5)
  1. FOSAMPRENAVIR CALCIUM [Concomitant]
     Active Substance: FOSAMPRENAVIR CALCIUM
     Indication: HIV INFECTION
     Route: 048
  2. ENFUVIRTIDE [Concomitant]
     Active Substance: ENFUVIRTIDE
     Indication: HIV INFECTION
     Route: 042
  3. RALTEGRAVIR POTASSIUM/PLACEBO [Concomitant]
     Indication: HIV INFECTION
     Dosage: DAILY
     Route: 048
  4. RITONAVIR. [Suspect]
     Active Substance: RITONAVIR
     Indication: HIV INFECTION
     Route: 048
  5. DIDANOSINE. [Concomitant]
     Active Substance: DIDANOSINE
     Indication: HIV INFECTION
     Route: 048

REACTIONS (1)
  - Abortion induced [Unknown]
